FAERS Safety Report 13077602 (Version 1)
Quarter: 2016Q4

REPORT INFORMATION
  Report Type: Spontaneous
  Country: US (occurrence: US)
  Receive Date: 20161231
  Receipt Date: 20161231
  Transmission Date: 20170207
  Serious: No
  Sender: FDA-Public Use
  Company Number: US-DRREDDYS-USA/USA/16/0083976

PATIENT
  Sex: Female
  Weight: 106.14 kg

DRUGS (2)
  1. NICOTINE TRANSDERMAL PATCH [Suspect]
     Active Substance: NICOTINE
     Indication: SMOKING CESSATION THERAPY
     Route: 062
     Dates: start: 20161010
  2. NICOTINE TRANSDERMAL PATCH [Suspect]
     Active Substance: NICOTINE
     Route: 062
     Dates: start: 201609

REACTIONS (2)
  - Cough [Recovered/Resolved]
  - Treatment noncompliance [Unknown]
